FAERS Safety Report 20515449 (Version 1)
Quarter: 2022Q1

REPORT INFORMATION
  Report Type: Spontaneous
  Country: US (occurrence: US)
  Receive Date: 20220224
  Receipt Date: 20220224
  Transmission Date: 20220423
  Serious: No
  Sender: FDA-Public Use
  Company Number: US-LANTHEUS-LMI-2021-00057

PATIENT
  Age: 64 Year
  Sex: Female
  Weight: 74 kg

DRUGS (3)
  1. DEFINITY [Suspect]
     Active Substance: PERFLUTREN
     Indication: Stress echocardiogram
     Dosage: 8 MILLILITER (1.3 ML DEFINITY PREPARED IN 8.7 ML NS)
     Route: 042
     Dates: start: 20210128, end: 20210128
  2. ASPIRIN [Concomitant]
     Active Substance: ASPIRIN
     Indication: Product used for unknown indication
     Dosage: UNK
  3. CRESTOR [Concomitant]
     Active Substance: ROSUVASTATIN CALCIUM
     Indication: Product used for unknown indication
     Dosage: UNK

REACTIONS (1)
  - Muscle spasms [Recovered/Resolved]

NARRATIVE: CASE EVENT DATE: 20210128
